FAERS Safety Report 9620632 (Version 3)
Quarter: 2013Q4

REPORT INFORMATION
  Report Type: Spontaneous
  Country: US (occurrence: US)
  Receive Date: 20131015
  Receipt Date: 20131111
  Transmission Date: 20140711
  Serious: Yes (Hospitalization, Other)
  Sender: FDA-Public Use
  Company Number: US-AMGEN-USASP2013071808

PATIENT
  Age: 69 Year
  Sex: Male
  Weight: 93.42 kg

DRUGS (16)
  1. ENBREL [Suspect]
     Indication: RHEUMATOID ARTHRITIS
     Dosage: 50 MG, QWK
     Route: 058
     Dates: start: 201201
  2. AMLODIPINE BESYLATE [Concomitant]
     Dosage: 10 MG, QD
  3. ASPIRIN [Concomitant]
     Dosage: 81 MG, QD
  4. FERROUS SULFATE [Concomitant]
     Dosage: 325 MG, QD
  5. GABAPENTIN [Concomitant]
     Dosage: 300 MG, BID
  6. GLIMEPIRIDE [Concomitant]
     Dosage: 4 MG, BID
  7. ACETAMINOPHEN W/HYDROCODONE [Concomitant]
     Dosage: 7.5-500 BID
  8. HYDROXYCHLOROQUINE SULPHATE [Concomitant]
     Dosage: 200 MG, BID
  9. LISINOPRIL [Concomitant]
     Dosage: 40 MG TABS, 1/2 TAB DAILY,
  10. METFORMIN HCL [Concomitant]
     Dosage: 1000 MG, BID
  11. METOPROLOL TARTRATE [Concomitant]
     Dosage: 100 MG, BID
  12. PANTOPRAZOLE SODIUM [Concomitant]
     Dosage: 40 MG, TSEC QD
  13. RYTHMOL                            /00546301/ [Concomitant]
     Dosage: 150 MG, Q8H
  14. SULFAZINE [Concomitant]
     Dosage: 500 MG, BID
  15. TERAZOSIN HCL [Concomitant]
     Dosage: 2 MG, QHS
  16. TRADJENTA [Concomitant]
     Dosage: 5 MG, QD

REACTIONS (23)
  - Gastric ulcer haemorrhage [Unknown]
  - Gastrointestinal haemorrhage [Recovered/Resolved]
  - Gastric ulcer [Unknown]
  - Gait disturbance [Unknown]
  - Rheumatoid arthritis [Unknown]
  - Chronic obstructive pulmonary disease [Unknown]
  - Eating disorder [Unknown]
  - Anaemia [Recovered/Resolved]
  - Helicobacter infection [Unknown]
  - Lyme disease [Not Recovered/Not Resolved]
  - Pain in extremity [Unknown]
  - Fracture [Unknown]
  - Fall [Unknown]
  - Joint injury [Unknown]
  - Mobility decreased [Not Recovered/Not Resolved]
  - Arthropathy [Not Recovered/Not Resolved]
  - Skin reaction [Recovered/Resolved]
  - Arthropod bite [Recovered/Resolved]
  - Decreased appetite [Unknown]
  - Skin lesion [Unknown]
  - Nausea [Unknown]
  - Gastrooesophageal reflux disease [Unknown]
  - Cellulitis [Unknown]
